FAERS Safety Report 8110864-6 (Version None)
Quarter: 2012Q1

REPORT INFORMATION
  Report Type: 
  Country: None (occurrence: None)
  Receive Date: 20120203
  Receipt Date: 20120126
  Transmission Date: 20120608
  Serious: Yes (Other)
  Sender: FDA-Public Use
  Company Number: US-US-EMD SERONO, INC.-7109511

PATIENT
  Sex: Female

DRUGS (2)
  1. REBIF [Suspect]
     Indication: MULTIPLE SCLEROSIS
     Route: 058
     Dates: start: 20080227
  2. AMPYRA [Concomitant]
     Dates: start: 20110101

REACTIONS (4)
  - FOOT DEFORMITY [None]
  - BLADDER DYSFUNCTION [None]
  - MUSCULAR WEAKNESS [None]
  - DIZZINESS [None]
